FAERS Safety Report 6025211-3 (Version None)
Quarter: 2008Q4

REPORT INFORMATION
  Report Type: 
  Country: None (occurrence: None)
  Receive Date: 20081224
  Receipt Date: 20081212
  Transmission Date: 20090506
  Serious: Yes (Hospitalization)
  Sender: FDA-Public Use
  Company Number: 2008SP023311

PATIENT
  Age: 42 Year
  Sex: Female
  Weight: 60 kg

DRUGS (2)
  1. PEG-INTRON [Suspect]
     Indication: HEPATITIS C
     Dosage: 100 MCG, QW;
     Dates: start: 20081112
  2. REBETOL [Suspect]
     Indication: HEPATITIS C
     Dosage: 800 MG; PO
     Route: 048

REACTIONS (10)
  - ALOPECIA [None]
  - ANAEMIA [None]
  - ARTHRALGIA [None]
  - ASTHENIA [None]
  - DIZZINESS [None]
  - GENERAL PHYSICAL HEALTH DETERIORATION [None]
  - HEADACHE [None]
  - LEUKOPENIA [None]
  - PAIN [None]
  - POISONING [None]
